FAERS Safety Report 5397593-7 (Version None)
Quarter: 2007Q3

REPORT INFORMATION
  Report Type: 
  Country: None (occurrence: None)
  Receive Date: 20070723
  Receipt Date: 20070723
  Transmission Date: 20080115
  Serious: Yes (Life-Threatening, Other)
  Sender: FDA-Public Use
  Company Number: None

PATIENT
  Age: 43 Year
  Sex: Male
  Weight: 77.1115 kg

DRUGS (1)
  1. POTASSIUM CHLORIDE [Suspect]
     Indication: BLOOD POTASSIUM DECREASED
     Dosage: 2 LARGE ORANGE FIZZY TABLETS  1X  PO
     Route: 048
     Dates: start: 20070211, end: 20070211

REACTIONS (3)
  - CHEST PAIN [None]
  - FEELING ABNORMAL [None]
  - PALPITATIONS [None]
